FAERS Safety Report 5878151-4 (Version None)
Quarter: 2008Q3

REPORT INFORMATION
  Report Type: 
  Country: None (occurrence: None)
  Receive Date: 20080911
  Receipt Date: 20080908
  Transmission Date: 20090109
  Serious: Yes (Life-Threatening, Hospitalization, Disabling)
  Sender: FDA-Public Use
  Company Number: US-ASTRAZENECA-2008UW18676

PATIENT
  Age: 59 Year
  Sex: Female

DRUGS (1)
  1. TAMOXIFEN CITRATE [Suspect]
     Route: 048
     Dates: start: 19990624, end: 19991019

REACTIONS (4)
  - DEEP VEIN THROMBOSIS [None]
  - HYPERTHERMIA [None]
  - OEDEMA [None]
  - PAIN [None]
